FAERS Safety Report 5248879-8 (Version None)
Quarter: 2007Q1

REPORT INFORMATION
  Report Type: 
  Country: None (occurrence: None)
  Receive Date: 20070228
  Receipt Date: 20060412
  Transmission Date: 20070707
  Serious: No
  Sender: FDA-Public Use
  Company Number: US-GLAXOSMITHKLINE-A0600091A

PATIENT
  Age: 69 Year
  Sex: Female

DRUGS (4)
  1. VALTREX [Suspect]
     Indication: HERPES ZOSTER
     Dosage: 500MG TWICE PER DAY
     Route: 048
     Dates: start: 20060324, end: 20060325
  2. ACYCLOVIR [Concomitant]
  3. SYNTHROID [Concomitant]
  4. ENALAPRIL MALEATE [Concomitant]

REACTIONS (5)
  - EYE SWELLING [None]
  - RASH PRURITIC [None]
  - SWELLING [None]
  - SWELLING FACE [None]
  - THROAT TIGHTNESS [None]
